FAERS Safety Report 4496929-9 (Version None)
Quarter: 2004Q4

REPORT INFORMATION
  Report Type: 
  Country: None (occurrence: None)
  Receive Date: 20041109
  Receipt Date: 20041005
  Transmission Date: 20050328
  Serious: Yes (Hospitalization, Disabling)
  Sender: FDA-Public Use
  Company Number: CL-MERCK-0410CHL00009

PATIENT
  Age: 79 Year
  Sex: Female

DRUGS (2)
  1. VIOXX [Suspect]
     Indication: PAIN
     Route: 048
     Dates: start: 19990101, end: 20040901
  2. ACENOCOUMAROL [Concomitant]
     Indication: THROMBOSIS
     Route: 048
     Dates: start: 20011201

REACTIONS (2)
  - CEREBRAL INFARCTION [None]
  - THROMBOSIS [None]
